FAERS Safety Report 9892048 (Version 1)
Quarter: 2014Q1

REPORT INFORMATION
  Report Type: Spontaneous
  Country: US (occurrence: US)
  Receive Date: 20140212
  Receipt Date: 20140212
  Transmission Date: 20141002
  Serious: Yes (Hospitalization)
  Sender: FDA-Public Use
  Company Number: US-GLAXOSMITHKLINE-A1059441A

PATIENT
  Age: 74 Year
  Sex: Female

DRUGS (2)
  1. AVANDIA [Suspect]
     Indication: BLOOD GLUCOSE
     Route: 048
     Dates: end: 2008
  2. BLOOD PRESSURE MEDICATION [Concomitant]

REACTIONS (3)
  - Cerebrovascular accident [Unknown]
  - Paralysis [Unknown]
  - Speech disorder [Unknown]
